FAERS Safety Report 4886091-2 (Version None)
Quarter: 2006Q1

REPORT INFORMATION
  Report Type: 
  Country: None (occurrence: None)
  Receive Date: 20060118
  Receipt Date: 20060118
  Transmission Date: 20060701
  Serious: Yes (Hospitalization, Other)
  Sender: FDA-Public Use
  Company Number: None

PATIENT
  Sex: Male
  Weight: 72.6 kg

DRUGS (8)
  1. CYCLOPHOSPHAMIDE [Suspect]
     Indication: B-CELL LYMPHOMA
     Dosage: SEE MAGE
     Dates: start: 20040608
  2. ALLOPURINOL [Suspect]
     Dosage: SEE IMAGE
     Dates: start: 20040608
  3. FLUDARABINE PHOSPHATE [Suspect]
     Dosage: SEE IMAGE
     Dates: start: 20040608
  4. G-CSF FILGRASTIM, AMGEN [Suspect]
     Dosage: SEE IMAGE
     Dates: start: 20040608
  5. METHOTREXATE [Suspect]
     Dosage: SEE IMAGE
     Dates: start: 20040608
  6. TACROLIMUS [Suspect]
     Dosage: SEE IMAGE
     Dates: start: 20040608
  7. CELLCEPT [Concomitant]
  8. PREDNISONE [Concomitant]

REACTIONS (4)
  - BRONCHITIS [None]
  - CITROBACTER INFECTION [None]
  - KLEBSIELLA BACTERAEMIA [None]
  - RESPIRATORY SYNCYTIAL VIRUS INFECTION [None]
